FAERS Safety Report 7576490-2 (Version None)
Quarter: 2011Q2

REPORT INFORMATION
  Report Type: 
  Country: None (occurrence: None)
  Receive Date: 20110628
  Receipt Date: 20091122
  Transmission Date: 20111010
  Serious: Yes (Death, Hospitalization, Other)
  Sender: FDA-Public Use
  Company Number: US-BAYER-201040765NA

PATIENT
  Age: 76 Year
  Sex: Male
  Weight: 109 kg

DRUGS (35)
  1. TRASYLOL [Suspect]
     Indication: CORONARY ARTERY BYPASS
     Dosage: UNK
     Route: 042
     Dates: start: 20061222, end: 20061222
  2. CLONIDINE [Concomitant]
     Dosage: 0.2 MG, QD
     Route: 048
  3. SIMVASTATIN [Concomitant]
     Dosage: 40 MG, QD
     Route: 048
  4. FUROSEMIDE [Concomitant]
     Dosage: 40 MG, QD
     Route: 048
  5. LANTUS [Concomitant]
     Dosage: 20 U, HS
     Route: 058
  6. PROTAMINE SULFATE [Concomitant]
     Dosage: 600 MG, UNK
     Route: 042
     Dates: start: 20061222, end: 20061222
  7. DOBUTAMINE HCL [Concomitant]
     Dosage: UNK
     Route: 042
     Dates: start: 20061222, end: 20061222
  8. DRAMAMINE [Concomitant]
     Dosage: 50 MG, UNK
     Route: 042
     Dates: start: 20061222, end: 20061222
  9. TRASYLOL [Suspect]
     Dosage: UNK
     Route: 042
     Dates: start: 20061222, end: 20061222
  10. FELODIPINE [Concomitant]
     Dosage: 10 MG, QD
     Route: 048
  11. CILOSTAZOL [Concomitant]
     Dosage: 100 MG, QD
     Route: 048
  12. AMICAR [Concomitant]
     Dosage: 20 G, UNK
     Route: 042
     Dates: start: 20061222, end: 20061222
  13. SOLU-MEDROL [Concomitant]
     Dosage: UNK
     Route: 042
     Dates: start: 20061222, end: 20061222
  14. PLATELETS [Concomitant]
     Dosage: 4 PACKS
     Route: 042
     Dates: start: 20061222, end: 20061222
  15. LEVOTHYROXINE SODIUM [Concomitant]
     Dosage: 0.75 MG, QD
     Route: 048
  16. ACETYLSALICYLIC ACID SRT [Concomitant]
     Dosage: 80 MG, QD
     Route: 048
  17. LISINOPRIL [Concomitant]
     Dosage: 10 MG, QD
     Route: 048
  18. METOPROLOL SUCCINATE [Concomitant]
     Dosage: 200 MG, QD
     Route: 048
  19. PAVULON [Concomitant]
     Dosage: UNK
     Route: 042
     Dates: start: 20061222, end: 20061222
  20. LASIX [Concomitant]
     Dosage: UNK
     Route: 042
     Dates: start: 20061222, end: 20061222
  21. POTASSIUM CHLORIDE [Concomitant]
     Dosage: UNK
     Route: 042
     Dates: start: 20061222, end: 20061222
  22. NITROGLYCERIN [Concomitant]
     Dosage: 0.4 MG, UNK
     Route: 061
  23. HEPARIN [Concomitant]
     Dosage: 44000 U, UNK
     Route: 042
     Dates: start: 20061222, end: 20061222
  24. BUMEX [Concomitant]
     Dosage: UNK
     Route: 042
     Dates: start: 20061222, end: 20061222
  25. VECURONIUM BROMIDE [Concomitant]
     Dosage: UNK
     Route: 042
     Dates: start: 20061222, end: 20061222
  26. FENTANYL [Concomitant]
     Dosage: UNK
     Route: 042
     Dates: start: 20061222, end: 20061222
  27. INSULIN [Concomitant]
     Dosage: UNK
     Route: 042
     Dates: start: 20061222, end: 20061222
  28. FERROUS SULFATE TAB [Concomitant]
     Dosage: 325 MG, QD
     Route: 048
  29. VERSED [Concomitant]
     Dosage: UNK
     Route: 042
     Dates: start: 20061222, end: 20061222
  30. ALLOPURINOL [Concomitant]
     Dosage: 100 MG, QD
     Route: 048
  31. SYNTHROID [Concomitant]
     Route: 048
  32. MULTI-VITAMIN [Concomitant]
     Route: 048
  33. DILANTIN [Concomitant]
     Dosage: UNK
     Route: 042
     Dates: start: 20061222, end: 20061222
  34. ANCEF [Concomitant]
     Dosage: 2 G, UNK
     Route: 042
     Dates: start: 20061222, end: 20061222
  35. LEVOPHED [Concomitant]
     Dosage: UNK
     Route: 042
     Dates: start: 20061222, end: 20061222

REACTIONS (12)
  - UNEVALUABLE EVENT [None]
  - RENAL IMPAIRMENT [None]
  - INJURY [None]
  - ANXIETY [None]
  - RENAL FAILURE [None]
  - EMOTIONAL DISTRESS [None]
  - RENAL INJURY [None]
  - FEAR [None]
  - PAIN [None]
  - STRESS [None]
  - DEATH [None]
  - MULTI-ORGAN FAILURE [None]
